FAERS Safety Report 19155903 (Version 1)
Quarter: 2021Q2

REPORT INFORMATION
  Report Type: Spontaneous
  Country: US (occurrence: US)
  Receive Date: 20210420
  Receipt Date: 20210420
  Transmission Date: 20210717
  Serious: No
  Sender: FDA-Public Use
  Company Number: US-JNJFOC-20210414696

PATIENT
  Age: 63 Year
  Sex: Female

DRUGS (4)
  1. PEPCID [Suspect]
     Active Substance: FAMOTIDINE
     Indication: VACCINATION COMPLICATION
  2. COVID?19 VACCINE NOS. [Concomitant]
     Active Substance: COVID-19 VACCINE NOS
     Indication: COVID-19 IMMUNISATION
     Route: 065
     Dates: start: 20210304
  3. PEPCID [Suspect]
     Active Substance: FAMOTIDINE
     Indication: DYSPHAGIA
  4. PEPCID [Suspect]
     Active Substance: FAMOTIDINE
     Indication: PRODUCT USED FOR UNKNOWN INDICATION
     Dosage: FOR 14 DAYS
     Route: 065

REACTIONS (2)
  - Off label use [Unknown]
  - Product use in unapproved indication [Unknown]
